FAERS Safety Report 7324638-7 (Version None)
Quarter: 2011Q1

REPORT INFORMATION
  Report Type: 
  Country: None (occurrence: None)
  Receive Date: 20110218
  Receipt Date: 20110203
  Transmission Date: 20110831
  Serious: Yes (Other)
  Sender: FDA-Public Use
  Company Number: AUR-APL-2011-00499

PATIENT
  Age: 52 Year
  Sex: Male
  Weight: 95.24 kg

DRUGS (6)
  1. DIETARY FIBER [Suspect]
     Indication: CONSTIPATION
     Dosage: 2TSPS-BID
     Dates: start: 20100101, end: 20110110
  2. VICODIN [Concomitant]
  3. CITALOPRAM [Suspect]
     Indication: GRAND MAL CONVULSION
  4. PHENOBARBITAL [Suspect]
  5. ALPRAZOLAM [Suspect]
  6. PHENYTOIN [Suspect]
     Indication: GRAND MAL CONVULSION
     Dosage: ORAL
     Route: 048
     Dates: start: 20100101

REACTIONS (8)
  - EPILEPTIC AURA [None]
  - LETHARGY [None]
  - MOVEMENT DISORDER [None]
  - DIZZINESS [None]
  - CONSTIPATION [None]
  - SOMNOLENCE [None]
  - FATIGUE [None]
  - CONFUSIONAL STATE [None]
